FAERS Safety Report 22536461 (Version 1)
Quarter: 2023Q2

REPORT INFORMATION
  Report Type: Spontaneous
  Country: FR (occurrence: FR)
  Receive Date: 20230608
  Receipt Date: 20230608
  Transmission Date: 20230721
  Serious: Yes (Hospitalization)
  Sender: FDA-Public Use
  Company Number: None

PATIENT
  Age: 42 Year
  Sex: Female
  Weight: 121 kg

DRUGS (2)
  1. OMEPRAZOLE [Suspect]
     Active Substance: OMEPRAZOLE
     Indication: Helicobacter gastritis
     Dosage: 20 MG, Q12H (20 MG/ 2  FOIS PAR JOUR, 1 FP: PHARMACEUTICAL DOSAGE FORM)
     Route: 048
     Dates: start: 20230512, end: 20230513
  2. PYLERA [Suspect]
     Active Substance: BISMUTH SUBCITRATE POTASSIUM\METRONIDAZOLE\TETRACYCLINE HYDROCHLORIDE
     Indication: Helicobacter gastritis
     Dosage: UNK (12 CP/JOUR, 1FP: PHARMACEUTICAL DOSAGE FORM)
     Route: 048
     Dates: start: 20230512, end: 20230513

REACTIONS (1)
  - Acute generalised exanthematous pustulosis [Recovering/Resolving]

NARRATIVE: CASE EVENT DATE: 20230513
